FAERS Safety Report 9755444 (Version 1)
Quarter: 2013Q4

REPORT INFORMATION
  Report Type: Spontaneous
  Country: US (occurrence: US)
  Receive Date: 20131213
  Receipt Date: 20131213
  Transmission Date: 20140711
  Serious: No
  Sender: FDA-Public Use
  Company Number: US-GLAXOSMITHKLINE-A1018196A

PATIENT
  Age: 27 Year
  Sex: Male
  Weight: 63 kg

DRUGS (1)
  1. EQUATE NTS 14MG, CLEAR [Suspect]
     Indication: EX-TOBACCO USER

REACTIONS (1)
  - Drug ineffective [Unknown]
